FAERS Safety Report 9814692 (Version 1)
Quarter: 2014Q1

REPORT INFORMATION
  Report Type: Spontaneous
  Country: US (occurrence: US)
  Receive Date: 20140113
  Receipt Date: 20140113
  Transmission Date: 20141002
  Serious: Yes (Hospitalization)
  Sender: FDA-Public Use
  Company Number: US-SANOFI-AVENTIS-2012SA093367

PATIENT
  Age: 64 Year
  Sex: Female
  Weight: 62.14 kg

DRUGS (11)
  1. DOCETAXEL [Suspect]
     Indication: PRODUCT USED FOR UNKNOWN INDICATION
     Route: 042
     Dates: start: 20121119, end: 20121127
  2. PERTUZUMAB [Suspect]
     Indication: BREAST CANCER
     Route: 042
     Dates: start: 20121119, end: 20121127
  3. PERTUZUMAB [Suspect]
     Indication: BREAST CANCER
     Route: 042
     Dates: start: 20121119, end: 20121127
  4. TRASTUZUMAB [Suspect]
     Indication: BREAST CANCER
     Dosage: DOSE: 8MG/KG
     Route: 042
     Dates: start: 20121119, end: 20121127
  5. CARBOPLATIN [Suspect]
     Indication: PRODUCT USED FOR UNKNOWN INDICATION
     Route: 042
     Dates: start: 20121119, end: 20121127
  6. VITAMIN B12 [Concomitant]
     Dates: start: 1981
  7. ESCITALOPRAM [Concomitant]
     Dates: start: 200408
  8. LUNESTA [Concomitant]
     Dates: start: 200408
  9. OMEPRAZOLE [Concomitant]
     Dates: start: 200203
  10. OXYCODONE HYDROCHLORIDE/PARACETAMOL [Concomitant]
     Dosage: DOSE: 75-325 MG
     Dates: start: 200306
  11. MILNACIPRAN [Concomitant]
     Dates: start: 200408

REACTIONS (1)
  - Diarrhoea [Recovered/Resolved with Sequelae]
